FAERS Safety Report 7451332-4 (Version None)
Quarter: 2011Q2

REPORT INFORMATION
  Report Type: 
  Country: None (occurrence: None)
  Receive Date: 20110502
  Receipt Date: 20110330
  Transmission Date: 20111010
  Serious: Yes (Other)
  Sender: FDA-Public Use
  Company Number: US-BAYER-200921496NA

PATIENT
  Age: 58 Year
  Sex: Female
  Weight: 80.5 kg

DRUGS (30)
  1. OMNISCAN [Suspect]
     Indication: NUCLEAR MAGNETIC RESONANCE IMAGING
     Dosage: 20 ML, UNK
     Dates: start: 20060630, end: 20060630
  2. NEPHROCAPS [Concomitant]
     Dosage: ONE A DAY
  3. AMITRIPTYLINE [Concomitant]
     Dosage: 20 MG, UNK
     Route: 048
  4. HYDROCODONE [HYDROCODONE] [Concomitant]
     Dosage: 500 MG, UNK
     Route: 048
     Dates: start: 20060320
  5. OMNISCAN [Suspect]
  6. OPTIMARK [Suspect]
     Indication: NUCLEAR MAGNETIC RESONANCE IMAGING
  7. SENSIPAR [Concomitant]
     Dosage: DAILY DOSE 90 MG
     Route: 048
     Dates: start: 20041005, end: 20081031
  8. ZEMPLAR [Concomitant]
     Dosage: 4 ?G, TIW (GIVEN AT DIALYSIS)
  9. OMEGA [CARBINOXAMINE MALEATE] [Concomitant]
     Dosage: 1 DF, QD
  10. RENAGEL [Concomitant]
     Dosage: 800 MG, TID
     Route: 048
     Dates: start: 20020528, end: 20081031
  11. ALBUTEROL [Concomitant]
     Dosage: 2 PUFF(S), EVER4 TO 6 HOURS AS NEEDED
  12. TRIMETHOPRIM + SULFAMETHOXAZOLE [Concomitant]
     Dosage: 1 TAB BID FOR 7 DAYS
     Route: 048
     Dates: start: 20060320
  13. MAGNEVIST [Suspect]
  14. MAGNEVIST [Suspect]
     Indication: NECK PAIN
  15. GABAPENTIN [Concomitant]
     Dosage: 100 MG, BID
     Dates: start: 20060703, end: 20081023
  16. MAGNEVIST [Suspect]
     Indication: NUCLEAR MAGNETIC RESONANCE IMAGING
     Dosage: 15 ML, UNK
     Dates: start: 20040212, end: 20040212
  17. PROHANCE [Suspect]
     Indication: NUCLEAR MAGNETIC RESONANCE IMAGING
  18. NEURONTIN [Concomitant]
     Dosage: 100 MG, QID
  19. PREDNISONE [Concomitant]
     Dosage: UNK
     Route: 048
     Dates: start: 20050930
  20. ISOVUE-300 [Concomitant]
     Dosage: 125 ML, UNK
     Route: 042
     Dates: start: 20051115, end: 20051115
  21. MAGNEVIST [Suspect]
     Indication: INFECTION
  22. MULTIHANCE [Suspect]
     Indication: NUCLEAR MAGNETIC RESONANCE IMAGING
  23. EPOGEN [Concomitant]
     Indication: ANAEMIA
     Dosage: 25000 U, TIW
     Dates: start: 20030904, end: 20040423
  24. METRONIDAZOLE [Concomitant]
     Dosage: 500 MG, BID
     Dates: start: 20051125
  25. GADOLINIUM IN UNSPECIFIED DRUG [Suspect]
     Indication: X-RAY
     Dosage: UNK
     Dates: start: 20020628, end: 20020628
  26. WARFARIN [Concomitant]
     Dosage: 5 MG, QID
     Dates: start: 20000101
  27. ATENOLOL [Concomitant]
     Dosage: 12.5 MG, HS
  28. CLINDAMYCIN [Concomitant]
     Dosage: UNK
     Route: 061
     Dates: start: 20061004
  29. RANITIDINE [Concomitant]
     Dosage: 150 MG, QID, PRN
     Dates: start: 20020821, end: 20081031
  30. PROTONIX [Concomitant]
     Dosage: 40 MG, QAM

REACTIONS (22)
  - SKIN FIBROSIS [None]
  - SKIN HYPERTROPHY [None]
  - MUSCULOSKELETAL STIFFNESS [None]
  - PAIN OF SKIN [None]
  - SKIN DISORDER [None]
  - MUSCLE TIGHTNESS [None]
  - GENERAL PHYSICAL HEALTH DETERIORATION [None]
  - EMOTIONAL DISTRESS [None]
  - QUALITY OF LIFE DECREASED [None]
  - PAIN [None]
  - MOBILITY DECREASED [None]
  - RASH PAPULAR [None]
  - PRURITUS [None]
  - JOINT RANGE OF MOTION DECREASED [None]
  - BONE PAIN [None]
  - SCAR [None]
  - GAIT DISTURBANCE [None]
  - SKIN DISCOLOURATION [None]
  - ANXIETY [None]
  - NEPHROGENIC SYSTEMIC FIBROSIS [None]
  - DEFORMITY [None]
  - SKIN INDURATION [None]
